FAERS Safety Report 9317972 (Version 1)
Quarter: 2013Q2

REPORT INFORMATION
  Report Type: Spontaneous
  Country: US (occurrence: US)
  Receive Date: 20130530
  Receipt Date: 20130530
  Transmission Date: 20140414
  Serious: No
  Sender: FDA-Public Use
  Company Number: US-GLAXOSMITHKLINE-A0998385A

PATIENT
  Age: 43 Year
  Sex: Male

DRUGS (3)
  1. VENTOLIN [Suspect]
     Indication: ASTHMA
     Route: 055
     Dates: start: 2008
  2. PREDNISONE [Concomitant]
  3. NEBULIZER [Concomitant]

REACTIONS (5)
  - Dizziness [Recovered/Resolved]
  - Nervousness [Recovered/Resolved]
  - Tremor [Recovered/Resolved]
  - Ill-defined disorder [Recovered/Resolved]
  - Product quality issue [Unknown]
